FAERS Safety Report 4376744-7 (Version None)
Quarter: 2004Q2

REPORT INFORMATION
  Report Type: 
  Country: None (occurrence: None)
  Receive Date: 20040608
  Receipt Date: 20040601
  Transmission Date: 20050107
  Serious: Yes (Hospitalization)
  Sender: FDA-Public Use
  Company Number: US-JNJFOC-20040600328

PATIENT
  Age: 70 Year
  Sex: Female

DRUGS (3)
  1. ACETAMINOPHEN [Suspect]
     Indication: BACK PAIN
     Dosage: 1000 MG, 4 IN 1 DAY ORAL
     Route: 048
     Dates: start: 19990101, end: 20030401
  2. UNSPECIFIED MEDICATIONS (ALL OTHER THERAPEUTIC PRODUCTS) [Concomitant]
  3. UNSPECIFIED HEART MEDICATION (CARDIAC THERAPY) [Concomitant]

REACTIONS (1)
  - HEPATIC CIRRHOSIS [None]
